FAERS Safety Report 21602387 (Version 2)
Quarter: 2022Q4

REPORT INFORMATION
  Report Type: Spontaneous
  Country: KR (occurrence: KR)
  Receive Date: 20221116
  Receipt Date: 20221128
  Transmission Date: 20230112
  Serious: Yes (Other)
  Sender: FDA-Public Use
  Company Number: KR-MYLANLABS-2022M1125863

PATIENT
  Age: 42 Year
  Sex: Female

DRUGS (4)
  1. RISPERIDONE [Suspect]
     Active Substance: RISPERIDONE
     Indication: Product used for unknown indication
     Dosage: 2 MILLIGRAM, QD
     Route: 065
     Dates: start: 20181210, end: 20190412
  2. LYRICA [Concomitant]
     Active Substance: PREGABALIN
     Indication: Focal dyscognitive seizures
     Dosage: 75 MILLIGRAM, QD
     Route: 065
     Dates: start: 20180704
  3. LYRICA [Concomitant]
     Active Substance: PREGABALIN
     Indication: Partial seizures
  4. REBAMIPIDE [Concomitant]
     Active Substance: REBAMIPIDE
     Dosage: 100 MILLIGRAM, QD
     Route: 065
     Dates: start: 20180616

REACTIONS (2)
  - Hyperprolactinaemia [Recovered/Resolved]
  - Amenorrhoea [Recovered/Resolved]

NARRATIVE: CASE EVENT DATE: 20190320
